FAERS Safety Report 22110865 (Version 1)
Quarter: 2023Q1

REPORT INFORMATION
  Report Type: Spontaneous
  Country: DE (occurrence: DE)
  Receive Date: 20230317
  Receipt Date: 20230317
  Transmission Date: 20230417
  Serious: Yes (Other)
  Sender: FDA-Public Use
  Company Number: DE-TEVA-2023-DE-2860108

PATIENT
  Sex: Male

DRUGS (2)
  1. PRIMIDONE [Suspect]
     Active Substance: PRIMIDONE
     Indication: Tremor
     Dosage: DOSE: 0 MG - 62.5 MG
     Route: 065
  2. PRIMIDONE [Suspect]
     Active Substance: PRIMIDONE
     Dosage: DOSE: 62.5 MG - 62.5 MG
     Route: 065

REACTIONS (16)
  - Subcutaneous abscess [Unknown]
  - Dizziness [Unknown]
  - Gait disturbance [Unknown]
  - Somnolence [Unknown]
  - Abdominal discomfort [Unknown]
  - Eructation [Unknown]
  - Regurgitation [Unknown]
  - Weight decreased [Unknown]
  - Hypersomnia [Unknown]
  - Drug ineffective [Unknown]
  - Skin disorder [Unknown]
  - Ingrown hair [Unknown]
  - Hypokinesia [Unknown]
  - Pruritus [Unknown]
  - Alopecia [Recovering/Resolving]
  - Hypersensitivity [Unknown]
